FAERS Safety Report 24116529 (Version 2)
Quarter: 2024Q4

REPORT INFORMATION
  Report Type: Spontaneous
  Country: US (occurrence: US)
  Receive Date: 20240722
  Receipt Date: 20241204
  Transmission Date: 20250115
  Serious: No
  Sender: ASTELLAS
  Company Number: US-ASTELLAS-2023US037970

PATIENT
  Age: 72 Year
  Sex: Male

DRUGS (1)
  1. MYRBETRIQ [Suspect]
     Active Substance: MIRABEGRON
     Indication: Product used for unknown indication
     Dosage: 50 MG, ONCE DAILY A YEAR AGO
     Route: 065
     Dates: start: 202310

REACTIONS (3)
  - Urinary incontinence [Unknown]
  - Micturition urgency [Unknown]
  - Therapeutic product effect incomplete [Unknown]
